FAERS Safety Report 21445615 (Version 3)
Quarter: 2023Q1

REPORT INFORMATION
  Report Type: Spontaneous
  Country: US (occurrence: US)
  Receive Date: 20221012
  Receipt Date: 20230227
  Transmission Date: 20230417
  Serious: No
  Sender: FDA-Public Use
  Company Number: US-BRISTOL-MYERS SQUIBB COMPANY-2022-118083

PATIENT
  Age: 52 Year
  Sex: Male

DRUGS (2)
  1. ORENCIA [Suspect]
     Active Substance: ABATACEPT
     Indication: Psoriasis
     Route: 058
     Dates: start: 20220510
  2. ORENCIA [Suspect]
     Active Substance: ABATACEPT
     Route: 058
     Dates: start: 20220428

REACTIONS (7)
  - Erythema [Unknown]
  - Dry skin [Unknown]
  - Pruritus [Unknown]
  - Skin burning sensation [Unknown]
  - Mental status changes [Unknown]
  - General physical condition abnormal [Unknown]
  - Rash [Unknown]
